FAERS Safety Report 6520249 (Version 2)
Quarter: 2013Q1

REPORT INFORMATION
  Report Type: Spontaneous
  Country: US (occurrence: US)
  Receive Date: 20080107
  Receipt Date: 20130208
  Transmission Date: 20140127
  Serious: Yes (Other)
  Sender: FDA-Public Use
  Company Number: US-RB-008209-07

PATIENT
  Age: 29 Year
  Sex: Female

DRUGS (5)
  1. SUBOXONE [Suspect]
     Indication: DRUG DEPENDENCE
     Route: 060
     Dates: start: 20050809
  2. SUBOXONE [Suspect]
     Route: 060
     Dates: end: 20070522
  3. SUBOXONE [Suspect]
     Route: 060
     Dates: start: 200710
  4. SUBUTEX [Suspect]
     Indication: DRUG DEPENDENCE
     Route: 060
     Dates: start: 20070523, end: 200710
  5. PRENATAL VITAMINS [Concomitant]
     Indication: PREGNANCY
     Dosage: 1 TABLET DAILY
     Route: 048

REACTIONS (3)
  - Exposure during pregnancy [Recovered/Resolved]
  - Foetal non-stress test abnormal [Recovered/Resolved]
  - Premature delivery [Recovered/Resolved]
